FAERS Safety Report 5005764-4 (Version None)
Quarter: 2006Q1

REPORT INFORMATION
  Report Type: 
  Country: None (occurrence: None)
  Receive Date: 20060320
  Receipt Date: 20060111
  Transmission Date: 20060701
  Serious: Yes (Hospitalization)
  Sender: FDA-Public Use
  Company Number: 2006-01-0778

PATIENT
  Age: 59 Year
  Sex: Female
  Weight: 87.0906 kg

DRUGS (8)
  1. PEG-INTRON [Suspect]
     Indication: HEPATITIS C
     Dosage: SUBCUTANEOUS
     Route: 058
     Dates: start: 20060104, end: 20060107
  2. ASPIRIN [Concomitant]
  3. COLACE [Concomitant]
  4. DIPHENHYDRAMINE HCL [Concomitant]
  5. PRILOSEC [Concomitant]
  6. PROPRANOL [Concomitant]
  7. TYLENOL (CAPLET) [Concomitant]
  8. ZETIA [Concomitant]

REACTIONS (1)
  - MYOCARDIAL INFARCTION [None]
